FAERS Safety Report 25445047 (Version 1)
Quarter: 2025Q2

REPORT INFORMATION
  Report Type: Spontaneous
  Country: ES (occurrence: ES)
  Receive Date: 20250617
  Receipt Date: 20250617
  Transmission Date: 20250717
  Serious: Yes (Other)
  Sender: RANBAXY
  Company Number: ES-SUN PHARMACEUTICAL INDUSTRIES LTD-2025R1-512137

PATIENT
  Age: 53 Year
  Sex: Female

DRUGS (4)
  1. TOFACITINIB [Suspect]
     Active Substance: TOFACITINIB
     Indication: Dermatomyositis
     Route: 065
  2. METHOTREXATE [Suspect]
     Active Substance: METHOTREXATE
     Indication: Dermatomyositis
     Route: 065
  3. HYDROXYCHLOROQUINE [Suspect]
     Active Substance: HYDROXYCHLOROQUINE
     Indication: Dermatomyositis
     Route: 065
  4. BARICITINIB [Suspect]
     Active Substance: BARICITINIB
     Indication: Dermatomyositis
     Dosage: 4 MILLIGRAM, DAILY
     Route: 065

REACTIONS (1)
  - Therapy non-responder [Unknown]
